FAERS Safety Report 5264066-1 (Version None)
Quarter: 2007Q1

REPORT INFORMATION
  Report Type: 
  Country: None (occurrence: None)
  Receive Date: 20061213
  Receipt Date: 20041220
  Transmission Date: 20070707
  Serious: Yes (Other)
  Sender: FDA-Public Use
  Company Number: 2004UW25837

PATIENT
  Age: 81 Year
  Sex: Female
  Weight: 56.24 kg

DRUGS (1)
  1. IRESSA [Suspect]
     Indication: NON-SMALL CELL LUNG CANCER
     Dates: start: 20041126

REACTIONS (3)
  - EYE DISCHARGE [None]
  - SINUS OPERATION [None]
  - SKIN LESION [None]
